FAERS Safety Report 7617324-7 (Version None)
Quarter: 2011Q3

REPORT INFORMATION
  Report Type: 
  Country: None (occurrence: None)
  Receive Date: 20110718
  Receipt Date: 20110712
  Transmission Date: 20111222
  Serious: Yes (Death)
  Sender: FDA-Public Use
  Company Number: PHHY2011BR61849

PATIENT
  Sex: Male

DRUGS (2)
  1. EXFORGE [Suspect]
     Dosage: 160 MG OF VALSARTAN AND 5 MG OF AMLODIPINE BESYLATE
  2. EXFORGE [Suspect]
     Dosage: 160 MG OF VALSARTAN AND 5 MG OF AMLODIPINE BESYLATE

REACTIONS (1)
  - DEATH [None]
